FAERS Safety Report 18559864 (Version 2)
Quarter: 2020Q4

REPORT INFORMATION
  Report Type: Spontaneous
  Country: US (occurrence: US)
  Receive Date: 20201130
  Receipt Date: 20201208
  Transmission Date: 20210114
  Serious: No
  Sender: FDA-Public Use
  Company Number: US-MYLANLABS-2020M1095677

PATIENT
  Sex: Female
  Weight: 61 kg

DRUGS (3)
  1. NATURE-THROID [Concomitant]
     Active Substance: THYROID, PORCINE
     Dosage: UNK
  2. ESTRADIOL TRANSDERMAL SYSTEM [Suspect]
     Active Substance: ESTRADIOL
     Indication: MENOPAUSAL SYMPTOMS
     Dosage: 0.05 MILLIGRAM, BIWEEKLY
     Route: 062
     Dates: end: 20201110
  3. PROGESTERONE. [Concomitant]
     Active Substance: PROGESTERONE
     Dosage: UNK

REACTIONS (4)
  - Malaise [Recovered/Resolved]
  - Alopecia [Recovered/Resolved]
  - Therapeutic product effect increased [Recovered/Resolved]
  - Vaginal haemorrhage [Recovered/Resolved]
